FAERS Safety Report 6744857-8 (Version None)
Quarter: 2010Q2

REPORT INFORMATION
  Report Type: 
  Country: None (occurrence: None)
  Receive Date: 20100527
  Receipt Date: 20100406
  Transmission Date: 20101027
  Serious: No
  Sender: FDA-Public Use
  Company Number: US-BRISTOL-MYERS SQUIBB COMPANY-15050255

PATIENT
  Age: 74 Year
  Sex: Female
  Weight: 100 kg

DRUGS (9)
  1. ONGLYZA [Suspect]
     Route: 048
     Dates: start: 20100401, end: 20100404
  2. ASPIRIN [Suspect]
  3. METFORMIN HYDROCHLORIDE [Concomitant]
  4. GLYBURIDE [Concomitant]
  5. ZETIA [Concomitant]
  6. LEVOTHYROXINE SODIUM [Concomitant]
  7. LOTREL [Concomitant]
  8. FUROSEMIDE [Concomitant]
  9. PERCOCET [Concomitant]

REACTIONS (2)
  - ABDOMINAL PAIN UPPER [None]
  - EPISTAXIS [None]
